FAERS Safety Report 14125362 (Version 1)
Quarter: 2017Q4

REPORT INFORMATION
  Report Type: Report from Study
  Country: ZA (occurrence: ZA)
  Receive Date: 20171025
  Receipt Date: 20171025
  Transmission Date: 20180321
  Serious: Yes (Other)
  Sender: FDA-Public Use
  Company Number: ZA-GILEAD-2017-0290788

PATIENT
  Sex: Female

DRUGS (1)
  1. EMTRICITABINE/TENOFOVIR DISOPROXIL FUMARATE [Suspect]
     Active Substance: EMTRICITABINE\TENOFOVIR DISOPROXIL FUMARATE
     Indication: PROPHYLAXIS AGAINST HIV INFECTION
     Dosage: 1 DF, Q1WK (FOR 5 DOSES)
     Route: 048

REACTIONS (4)
  - Viral mutation identified [Unknown]
  - Acute HIV infection [Unknown]
  - Drug ineffective [Unknown]
  - Drug resistance [Unknown]
